FAERS Safety Report 10780517 (Version 1)
Quarter: 2015Q1

REPORT INFORMATION
  Report Type: Other
  Country: US (occurrence: US)
  Receive Date: 20150210
  Receipt Date: 20150210
  Transmission Date: 20150721
  Serious: Yes (Death)
  Sender: FDA-Public Use
  Company Number: US-FRI-1000074332

PATIENT
  Age: 55 Year
  Sex: Female

DRUGS (5)
  1. CITALOPRAM [Suspect]
     Active Substance: CITALOPRAM HYDROBROMIDE
  2. MORPHINE [Suspect]
     Active Substance: MORPHINE
  3. OXYCODONE [Suspect]
     Active Substance: OXYCODONE
  4. DIAZEPAM. [Suspect]
     Active Substance: DIAZEPAM
  5. ALPRAZOLAM. [Suspect]
     Active Substance: ALPRAZOLAM

REACTIONS (1)
  - Drug abuse [Fatal]
